FAERS Safety Report 9408832 (Version 1)
Quarter: 2013Q3

REPORT INFORMATION
  Report Type: Spontaneous
  Country: US (occurrence: US)
  Receive Date: 20130719
  Receipt Date: 20130719
  Transmission Date: 20140515
  Serious: No
  Sender: FDA-Public Use
  Company Number: US-009507513-1307USA009824

PATIENT
  Age: 73 Year
  Sex: Male

DRUGS (1)
  1. COSOPT [Suspect]
     Indication: INTRAOCULAR PRESSURE TEST
     Dosage: ONE DROP IN EACH EYE AT NIGHT AND ONE DROP IN EACH EYE IN THE MORNING, TWICE DAILY
     Route: 047
     Dates: start: 20130715, end: 20130716

REACTIONS (3)
  - Eye swelling [Not Recovered/Not Resolved]
  - Eye discharge [Not Recovered/Not Resolved]
  - Eye irritation [Not Recovered/Not Resolved]
